FAERS Safety Report 13624111 (Version 1)
Quarter: 2017Q2

REPORT INFORMATION
  Report Type: Spontaneous
  Country: US (occurrence: US)
  Receive Date: 20170608
  Receipt Date: 20170608
  Transmission Date: 20170830
  Serious: Yes (Other)
  Sender: FDA-Public Use
  Company Number: US-ZYDUS-015374

PATIENT
  Age: 39 Year
  Sex: Female

DRUGS (1)
  1. HYDROXYCHLOROQUINE [Suspect]
     Active Substance: HYDROXYCHLOROQUINE
     Indication: SYSTEMIC LUPUS ERYTHEMATOSUS
     Dosage: CUMULATIVE DOSE OF 2,774 G
     Route: 065

REACTIONS (8)
  - Retinal degeneration [Unknown]
  - Blindness [Unknown]
  - Visual acuity reduced [Unknown]
  - Night blindness [Unknown]
  - Cystoid macular oedema [Unknown]
  - Maculopathy [Unknown]
  - Toxicity to various agents [Unknown]
  - Macular cyst [Unknown]
